FAERS Safety Report 4969433-9 (Version None)
Quarter: 2006Q2

REPORT INFORMATION
  Report Type: 
  Country: None (occurrence: None)
  Receive Date: 20060406
  Receipt Date: 20060326
  Transmission Date: 20061013
  Serious: Yes (Hospitalization, Other)
  Sender: FDA-Public Use
  Company Number: 200511216BWH

PATIENT
  Age: 58 Year
  Sex: Male

DRUGS (3)
  1. LEVITRA [Suspect]
     Dosage: 20 MG, QW, ORAL
     Route: 048
     Dates: start: 20040101, end: 20050522
  2. VIAGRA [Concomitant]
  3. CIALIS [Concomitant]

REACTIONS (11)
  - BLINDNESS TRANSIENT [None]
  - CEREBROVASCULAR ACCIDENT [None]
  - CHROMATOPSIA [None]
  - DIABETES MELLITUS [None]
  - EYE DISORDER [None]
  - HYPERTENSION [None]
  - MONOPLEGIA [None]
  - THERAPY REGIMEN CHANGED [None]
  - UNEVALUABLE EVENT [None]
  - VISUAL DISTURBANCE [None]
  - VISUAL FIELD DEFECT [None]
